FAERS Safety Report 20643307 (Version 2)
Quarter: 2022Q3

REPORT INFORMATION
  Report Type: Spontaneous
  Country: US (occurrence: US)
  Receive Date: 20220328
  Receipt Date: 20220729
  Transmission Date: 20221026
  Serious: Yes (Other)
  Sender: FDA-Public Use
  Company Number: US-SA-SAC20220323001766

PATIENT
  Age: 70 Year
  Sex: Male

DRUGS (1)
  1. ZANTAC [Suspect]
     Active Substance: RANITIDINE HYDROCHLORIDE
     Indication: Gastrooesophageal reflux disease
     Dosage: 150 MG, QD
     Dates: start: 200701, end: 201901

REACTIONS (4)
  - Skin cancer [Not Recovered/Not Resolved]
  - Bladder cancer stage III [Unknown]
  - Prostate cancer stage III [Unknown]
  - Ameloblastoma [Unknown]

NARRATIVE: CASE EVENT DATE: 20160101
